FAERS Safety Report 18745992 (Version 1)
Quarter: 2021Q1

REPORT INFORMATION
  Report Type: Spontaneous
  Country: US (occurrence: US)
  Receive Date: 20210114
  Receipt Date: 20210114
  Transmission Date: 20210419
  Serious: Yes (Death, Other)
  Sender: FDA-Public Use
  Company Number: None

PATIENT
  Age: 73 Year
  Sex: Male
  Weight: 128.2 kg

DRUGS (2)
  1. CHLORHEXIDINE 0.12% ORAL RINSE [Suspect]
     Active Substance: CHLORHEXIDINE
     Indication: DENTAL DISORDER PROPHYLAXIS
     Route: 002
  2. CHLORHEXIDINE 0.12% ORAL RINSE [Suspect]
     Active Substance: CHLORHEXIDINE
     Indication: DENTAL DISORDER PROPHYLAXIS
     Route: 002
     Dates: start: 20201006, end: 20201008

REACTIONS (8)
  - Aspiration [None]
  - Burkholderia test positive [None]
  - Recalled product administered [None]
  - Lactic acidosis [None]
  - Cardiac arrest [None]
  - Product quality issue [None]
  - Cardiomyopathy [None]
  - End stage renal disease [None]

NARRATIVE: CASE EVENT DATE: 20201016
